FAERS Safety Report 8934521 (Version 1)
Quarter: 2012Q4

REPORT INFORMATION
  Report Type: 
  Country: US (occurrence: US)
  Receive Date: 20121129
  Receipt Date: 20121129
  Transmission Date: 20130627
  Serious: No
  Sender: FDA-Public Use
  Company Number: US-GLAXOSMITHKLINE-A0973243A

PATIENT
  Age: 49 Year
  Sex: Female

DRUGS (3)
  1. FLOVENT [Suspect]
     Indication: BRONCHITIS
     Dosage: 1PUFF Twice per day
     Route: 055
     Dates: start: 201204
  2. VENTOLIN HFA [Concomitant]
  3. QVAR [Concomitant]
     Indication: BRONCHITIS

REACTIONS (3)
  - Pruritus generalised [Recovered/Resolved]
  - Urticaria [Unknown]
  - Urticaria [Unknown]
